FAERS Safety Report 4379771-9 (Version None)
Quarter: 2004Q2

REPORT INFORMATION
  Report Type: 
  Country: None (occurrence: None)
  Receive Date: 20040614
  Receipt Date: 20040527
  Transmission Date: 20050107
  Serious: Yes (Hospitalization)
  Sender: FDA-Public Use
  Company Number: 188005

PATIENT
  Age: 42 Year
  Sex: Female

DRUGS (2)
  1. AVONEX ^BIOGEN^ [Suspect]
     Indication: MULTIPLE SCLEROSIS
     Dosage: 30  MCG QW IM
     Route: 030
     Dates: start: 20010813
  2. AVONEX ^BIOGEN^ [Suspect]
     Indication: MULTIPLE SCLEROSIS
     Dosage: 30  MCG QW IM
     Route: 030
     Dates: start: 20040101

REACTIONS (4)
  - COMA [None]
  - CONVULSION [None]
  - ENCEPHALITIS [None]
  - HALLUCINATION [None]
